FAERS Safety Report 8008707-4 (Version None)
Quarter: 2011Q4

REPORT INFORMATION
  Report Type: 
  Country: None (occurrence: None)
  Receive Date: 20111227
  Receipt Date: 20111216
  Transmission Date: 20120403
  Serious: Yes (Hospitalization)
  Sender: FDA-Public Use
  Company Number: JP-MERCK-1109USA02517

PATIENT
  Age: 64 Year
  Sex: Male
  Weight: 74 kg

DRUGS (14)
  1. ADALAT [Concomitant]
     Indication: HYPERTENSION
     Dosage: DOSAGE IS UNCERTAIN DURING A DAY
     Route: 048
  2. ZETIA [Suspect]
     Indication: HYPERCHOLESTEROLAEMIA
     Route: 048
     Dates: start: 20110804, end: 20110815
  3. NESINA [Suspect]
     Indication: DIABETES MELLITUS
     Route: 048
     Dates: start: 20110804, end: 20110815
  4. ALLOPURINOL [Concomitant]
     Indication: HYPERURICAEMIA
     Dosage: DOSAGE IS UNCERTAIN DURING A DAY
     Route: 048
  5. ICOSAPENT ETHYL [Concomitant]
     Indication: HYPERCHOLESTEROLAEMIA
     Dosage: DOSAGE IS UNCERTAIN DURING A DAY
     Route: 048
  6. LENDEM [Concomitant]
     Indication: DEPRESSIVE SYMPTOM
     Dosage: DOSAGE IS UNCERTAIN DURING A DAY
     Route: 048
  7. MAGMITT [Concomitant]
     Indication: CONSTIPATION
     Dosage: DOSAGE IS UNCERTAIN DURING A DAY
     Route: 048
  8. VALSARTAN  AND HYDROCHLOROTHIAZIDE [Concomitant]
     Indication: HYPERTENSION
     Dosage: DOSAGE IS UNCERTAIN DURING A DAY
     Route: 048
  9. ALOSENN [Concomitant]
     Indication: CONSTIPATION
     Dosage: DOSAGE IS UNCERTAIN DURING A DAY
     Route: 048
  10. GLUCOBAY [Concomitant]
     Indication: DIABETES MELLITUS
     Dosage: DOSAGE IS UNCERTAIN DURING A DAY
     Route: 048
  11. ANIBESOL SR [Concomitant]
     Indication: HYPERCHOLESTEROLAEMIA
     Dosage: DOSAGE IS UNCERTAIN DURING A DAY
     Route: 048
  12. DIOVAN [Concomitant]
     Indication: HYPERTENSION
     Dosage: DOSAGE IS UNCERTAIN DURING A DAY
     Route: 048
  13. AMARYL [Concomitant]
     Indication: DIABETES MELLITUS
     Dosage: DOSAGE IS UNCERTAIN DURING A DAY
     Route: 048
  14. OVULANZE [Concomitant]
     Indication: GASTRITIS
     Dosage: DOSAGE IS UNCERTAIN DURING A DAY
     Route: 048

REACTIONS (7)
  - GENERALISED ERYTHEMA [None]
  - HEADACHE [None]
  - PYREXIA [None]
  - BLISTER [None]
  - INFECTION [None]
  - TOXIC SKIN ERUPTION [None]
  - PRURITUS [None]
